FAERS Safety Report 13829401 (Version 1)
Quarter: 2017Q3

REPORT INFORMATION
  Report Type: Spontaneous
  Country: US (occurrence: US)
  Receive Date: 20170803
  Receipt Date: 20170803
  Transmission Date: 20171127
  Serious: No
  Sender: FDA-Public Use
  Company Number: None

PATIENT

DRUGS (1)
  1. NITROGLYCERIN. [Suspect]
     Active Substance: NITROGLYCERIN
     Dosage: TABLET, ORALLY DISINTEGRATING
     Route: 060

REACTIONS (2)
  - Wrong drug administered [None]
  - Drug dispensing error [None]
